FAERS Safety Report 6682267-2 (Version None)
Quarter: 2010Q2

REPORT INFORMATION
  Report Type: 
  Country: None (occurrence: None)
  Receive Date: 20100415
  Receipt Date: 20100412
  Transmission Date: 20101027
  Serious: Yes (Death)
  Sender: FDA-Public Use
  Company Number: US-ASTRAZENECA-2009SE15006

PATIENT
  Age: 23678 Day
  Sex: Female

DRUGS (10)
  1. SEROQUEL [Suspect]
     Route: 048
     Dates: start: 20041104
  2. EFFEXOR XR [Concomitant]
     Dosage: 15 TO 150 MG DAILY
     Dates: start: 20071204
  3. ATIVAN [Concomitant]
  4. PROPOXYPHENE HCL [Concomitant]
     Dosage: 100/650 PRN
     Dates: start: 20071204
  5. CLONAZEPAM [Concomitant]
  6. LIPITOR [Concomitant]
     Dates: start: 20071204
  7. VIAGRA [Concomitant]
     Dates: start: 20080401
  8. LORAZEPAM [Concomitant]
     Dates: start: 20081125
  9. CRESTOR [Concomitant]
     Dates: start: 20081125
  10. RANITIDINE HCL [Concomitant]

REACTIONS (2)
  - GUN SHOT WOUND [None]
  - TYPE 2 DIABETES MELLITUS [None]
